FAERS Safety Report 4887841-1 (Version None)
Quarter: 2006Q1

REPORT INFORMATION
  Report Type: 
  Country: None (occurrence: None)
  Receive Date: 20060123
  Receipt Date: 20050810
  Transmission Date: 20060701
  Serious: Yes (Hospitalization)
  Sender: FDA-Public Use
  Company Number: US-MERCK-0508USA01973

PATIENT
  Age: 73 Year
  Sex: Male
  Weight: 84 kg

DRUGS (15)
  1. VIOXX [Suspect]
     Indication: PAIN
     Route: 048
     Dates: start: 20010101
  2. VIOXX [Suspect]
     Route: 048
     Dates: start: 20030301, end: 20040901
  3. WARFARIN [Concomitant]
     Route: 065
  4. HYDROCODONE BITARTRATE [Concomitant]
     Route: 065
  5. GEMFIBROZIL [Concomitant]
     Route: 065
  6. TEMAZEPAM [Concomitant]
     Route: 065
  7. PROPRANOLOL HYDROCHLORIDE [Concomitant]
     Route: 065
  8. TRIAMTERENE [Concomitant]
     Route: 065
  9. LIPITOR [Concomitant]
     Route: 065
  10. DIGITEK [Concomitant]
     Route: 065
  11. RESTORIL [Concomitant]
     Route: 065
  12. CLARINEX [Concomitant]
     Route: 065
  13. VICODIN [Concomitant]
     Route: 065
  14. DIGOXIN [Concomitant]
     Route: 065
  15. ACCUPRIL [Concomitant]
     Route: 065

REACTIONS (22)
  - ACUTE MYOCARDIAL INFARCTION [None]
  - ANAEMIA [None]
  - ATRIAL FIBRILLATION [None]
  - BLADDER OBSTRUCTION [None]
  - CARDIAC ARREST [None]
  - CHRONIC OBSTRUCTIVE PULMONARY DISEASE [None]
  - COMA [None]
  - CORONARY ARTERY DISEASE [None]
  - COUGH [None]
  - DEEP VEIN THROMBOSIS [None]
  - DYSPNOEA [None]
  - HAEMATURIA [None]
  - HOMOCYSTINAEMIA [None]
  - HYPERTENSION [None]
  - MENISCUS LESION [None]
  - PULMONARY EMBOLISM [None]
  - RENAL FAILURE [None]
  - RESTLESS LEGS SYNDROME [None]
  - THROMBOCYTOPENIA [None]
  - TYPE IV HYPERLIPIDAEMIA [None]
  - URETHRAL INJURY [None]
  - VENTRICULAR TACHYCARDIA [None]
